FAERS Safety Report 20255972 (Version 1)
Quarter: 2021Q4

REPORT INFORMATION
  Report Type: Spontaneous
  Country: US (occurrence: US)
  Receive Date: 20211230
  Receipt Date: 20211230
  Transmission Date: 20220303
  Serious: No
  Sender: FDA-Public Use
  Company Number: US-JNJFOC-20211239835

PATIENT

DRUGS (1)
  1. BALVERSA [Suspect]
     Active Substance: ERDAFITINIB
     Indication: Transitional cell carcinoma
     Dosage: USED AS 1ST LINE TREATMENT FOR MUC PATIENTS
     Route: 065

REACTIONS (2)
  - Off label use [Unknown]
  - Product use in unapproved indication [Unknown]
